FAERS Safety Report 15732398 (Version 1)
Quarter: 2018Q4

REPORT INFORMATION
  Report Type: Spontaneous
  Country: US (occurrence: US)
  Receive Date: 20181217
  Receipt Date: 20181217
  Transmission Date: 20190205
  Serious: Yes (Hospitalization)
  Sender: FDA-Public Use
  Company Number: None

PATIENT
  Sex: Female

DRUGS (9)
  1. ESCITALOPRAM [Concomitant]
     Active Substance: ESCITALOPRAM OXALATE
  2. VAPROXEN 500MG [Concomitant]
  3. DALFAMPRIDINE. [Suspect]
     Active Substance: DALFAMPRIDINE
     Indication: MULTIPLE SCLEROSIS
     Route: 048
     Dates: start: 20181010
  4. GABAPENTIN 300MG [Concomitant]
     Active Substance: GABAPENTIN
  5. FEROSUL 325MG [Concomitant]
  6. ASPIRIN 81MG [Concomitant]
     Active Substance: ASPIRIN
  7. BACLOFEN 10MG [Concomitant]
     Active Substance: BACLOFEN
  8. METFORMIN 500MG [Concomitant]
     Active Substance: METFORMIN HYDROCHLORIDE
  9. NAPROXEN 500MG [Concomitant]
     Active Substance: NAPROXEN

REACTIONS (2)
  - Anxiety [None]
  - Therapy cessation [None]
